FAERS Safety Report 6060974-2 (Version None)
Quarter: 2009Q1

REPORT INFORMATION
  Report Type: 
  Country: None (occurrence: None)
  Receive Date: 20090129
  Receipt Date: 20090129
  Transmission Date: 20090719
  Serious: Yes (Hospitalization)
  Sender: FDA-Public Use
  Company Number: None

PATIENT
  Sex: Male

DRUGS (2)
  1. CETUXIMAB [Suspect]
     Indication: METASTASIS
     Dosage: 400 MG/M2, LOADING, IV
     Route: 042
     Dates: start: 20090114
  2. CETUXIMAB [Suspect]
     Indication: SQUAMOUS CELL CARCINOMA
     Dosage: 400 MG/M2, LOADING, IV
     Route: 042
     Dates: start: 20090114

REACTIONS (6)
  - LYMPHADENOPATHY [None]
  - MUSCULAR WEAKNESS [None]
  - MUSCULOSKELETAL PAIN [None]
  - NECROSIS [None]
  - NERVE COMPRESSION [None]
  - NUCLEAR MAGNETIC RESONANCE IMAGING ABNORMAL [None]
